FAERS Safety Report 13328825 (Version 1)
Quarter: 2017Q1

REPORT INFORMATION
  Report Type: Spontaneous
  Country: US (occurrence: US)
  Receive Date: 20170312
  Receipt Date: 20170312
  Transmission Date: 20170428
  Serious: No
  Sender: FDA-Public Use
  Company Number: None

PATIENT
  Age: 62 Year
  Sex: Male
  Weight: 103.5 kg

DRUGS (9)
  1. FARXIGA [Concomitant]
     Active Substance: DAPAGLIFLOZIN PROPANEDIOL
  2. PRAVACHOL [Concomitant]
     Active Substance: PRAVASTATIN SODIUM
  3. MEN^S MULTI VITAMIN [Concomitant]
  4. SPIRIVA [Concomitant]
     Active Substance: TIOTROPIUM BROMIDE MONOHYDRATE
  5. TYLENOL [Concomitant]
     Active Substance: ACETAMINOPHEN
  6. COQ10 [Concomitant]
     Active Substance: UBIDECARENONE
  7. GABAPENTIN. [Concomitant]
     Active Substance: GABAPENTIN
  8. METACHLOPRAMIDE [Suspect]
     Active Substance: METOCLOPRAMIDE
     Indication: PNEUMONIA ASPIRATION
     Dosage: ?          QUANTITY:1 TABLET(S);?
     Route: 048
     Dates: start: 20160808, end: 20170301
  9. VITAMIN C [Concomitant]
     Active Substance: ASCORBIC ACID

REACTIONS (18)
  - Anxiety [None]
  - Feeling jittery [None]
  - Decreased appetite [None]
  - Abdominal distension [None]
  - Micturition urgency [None]
  - Oromandibular dystonia [None]
  - Akathisia [None]
  - Merycism [None]
  - Abdominal discomfort [None]
  - Pollakiuria [None]
  - Panic attack [None]
  - Incorrect drug administration duration [None]
  - Dizziness [None]
  - Agoraphobia [None]
  - Diarrhoea [None]
  - Dystonia [None]
  - Abdominal pain upper [None]
  - Nausea [None]

NARRATIVE: CASE EVENT DATE: 20170226
